FAERS Safety Report 16373643 (Version 4)
Quarter: 2020Q1

REPORT INFORMATION
  Report Type: Spontaneous
  Country: US (occurrence: US)
  Receive Date: 20190530
  Receipt Date: 20200106
  Transmission Date: 20200409
  Serious: No
  Sender: FDA-Public Use
  Company Number: US-SA-2019SA145910

PATIENT
  Age: 46 Year
  Sex: Male

DRUGS (9)
  1. HYDROCODONE [Concomitant]
     Active Substance: HYDROCODONE
  2. NUCYNTA ER [Concomitant]
     Active Substance: TAPENTADOL HYDROCHLORIDE
  3. AZITHROMYCIN ANHYDROUS. [Concomitant]
     Active Substance: AZITHROMYCIN ANHYDROUS
  4. TIZANIDINE. [Concomitant]
     Active Substance: TIZANIDINE
  5. DUPIXENT [Suspect]
     Active Substance: DUPILUMAB
     Indication: DERMATITIS ATOPIC
     Dosage: 300 MG, QOW
     Route: 058
     Dates: start: 20190219
  6. GRALISE [Concomitant]
     Active Substance: GABAPENTIN
  7. CLINDAMYCIN [CLINDAMYCIN PHOSPHATE] [Concomitant]
  8. CHLO TUSS [Concomitant]
     Active Substance: CHLOPHEDIANOL HYDROCHLORIDE\DEXBROMPHENIRAMINE MALEATE\PHENYLEPHRINE HYDROCHLORIDE
  9. OXYCODONE/APAP [OXYCODONE;PARACETAMOL] [Concomitant]

REACTIONS (5)
  - Acne [Not Recovered/Not Resolved]
  - Rash [Not Recovered/Not Resolved]
  - Dermatitis atopic [Not Recovered/Not Resolved]
  - Blister [Not Recovered/Not Resolved]
  - Rash [Not Recovered/Not Resolved]

NARRATIVE: CASE EVENT DATE: 2019
